FAERS Safety Report 17527011 (Version 1)
Quarter: 2020Q1

REPORT INFORMATION
  Report Type: Spontaneous
  Country: US (occurrence: US)
  Receive Date: 20200311
  Receipt Date: 20200311
  Transmission Date: 20200409
  Serious: No
  Sender: FDA-Public Use
  Company Number: US-PFIZER INC-2020102416

PATIENT
  Age: 38 Year
  Sex: Female

DRUGS (1)
  1. XELJANZ [Suspect]
     Active Substance: TOFACITINIB CITRATE
     Indication: RHEUMATOID ARTHRITIS
     Dosage: 5 MG, 2X/DAY
     Route: 048
     Dates: start: 20200208

REACTIONS (9)
  - Nasopharyngitis [Unknown]
  - Chills [Unknown]
  - Pain [Unknown]
  - Urticaria [Unknown]
  - Cough [Unknown]
  - Pyrexia [Unknown]
  - Inflammation [Unknown]
  - Influenza [Unknown]
  - Pruritus [Unknown]

NARRATIVE: CASE EVENT DATE: 20200208
